FAERS Safety Report 4372835-5 (Version None)
Quarter: 2004Q2

REPORT INFORMATION
  Report Type: 
  Country: None (occurrence: None)
  Receive Date: 20040608
  Receipt Date: 20040527
  Transmission Date: 20050107
  Serious: Yes (Other)
  Sender: FDA-Public Use
  Company Number: IE-BRISTOL-MYERS SQUIBB COMPANY-12598322

PATIENT
  Age: 6 Year
  Sex: Male

DRUGS (3)
  1. PARAPLATIN [Suspect]
     Indication: NEOPLASM
     Route: 042
     Dates: start: 20040419, end: 20040419
  2. ONDANSETRON [Concomitant]
  3. METOCLOPRAMIDE [Concomitant]

REACTIONS (4)
  - FACE OEDEMA [None]
  - FLUSHING [None]
  - OEDEMA MOUTH [None]
  - PRURITUS [None]
